FAERS Safety Report 7761738-1 (Version None)
Quarter: 2011Q3

REPORT INFORMATION
  Report Type: 
  Country: None (occurrence: None)
  Receive Date: 20110920
  Receipt Date: 20110915
  Transmission Date: 20111222
  Serious: Yes (Disabling, Other)
  Sender: FDA-Public Use
  Company Number: PHHY2011BR82740

PATIENT
  Sex: Female

DRUGS (1)
  1. EXELON [Suspect]
     Indication: DEMENTIA ALZHEIMER'S TYPE
     Dosage: UNK UKN, UNK

REACTIONS (4)
  - OSTEOARTHRITIS [None]
  - ABASIA [None]
  - MUSCULAR WEAKNESS [None]
  - DEMENTIA ALZHEIMER'S TYPE [None]
